FAERS Safety Report 19895175 (Version 1)
Quarter: 2021Q3

REPORT INFORMATION
  Report Type: Spontaneous
  Country: US (occurrence: US)
  Receive Date: 20210929
  Receipt Date: 20210929
  Transmission Date: 20211014
  Serious: Yes (Other)
  Sender: FDA-Public Use
  Company Number: US-GLAXOSMITHKLINE-US2021202986

PATIENT
  Sex: Female

DRUGS (1)
  1. NUCALA [Suspect]
     Active Substance: MEPOLIZUMAB
     Indication: ASTHMA
     Dosage: UNK (3 AUTOINJECTOR PER MONTH FOR 3 MONTHS)

REACTIONS (3)
  - Injection site mass [Unknown]
  - Injection site pain [Unknown]
  - Eosinophilic granulomatosis with polyangiitis [Unknown]
